FAERS Safety Report 7083326-5 (Version None)
Quarter: 2010Q4

REPORT INFORMATION
  Report Type: 
  Country: None (occurrence: None)
  Receive Date: 20101104
  Receipt Date: 20101026
  Transmission Date: 20110411
  Serious: Yes (Hospitalization)
  Sender: FDA-Public Use
  Company Number: PHHY2010US72172

PATIENT
  Age: 51 Year
  Sex: Female
  Weight: 125 kg

DRUGS (3)
  1. NEORAL [Suspect]
     Indication: RENAL TRANSPLANT
     Dosage: 350 MG, DAILY
     Route: 048
     Dates: start: 20041104
  2. NEORAL [Suspect]
     Dosage: 150 MG, DAILY
     Route: 048
     Dates: start: 20090101
  3. MYCOPHENOLATE MOFETIL [Concomitant]
     Dosage: 1000 MG, DAILY
     Route: 048
     Dates: start: 20041104

REACTIONS (3)
  - HERNIA [None]
  - HIP ARTHROPLASTY [None]
  - IMPAIRED HEALING [None]
